FAERS Safety Report 7581695-0 (Version None)
Quarter: 2011Q2

REPORT INFORMATION
  Report Type: 
  Country: None (occurrence: None)
  Receive Date: 20110629
  Receipt Date: 20110624
  Transmission Date: 20111010
  Serious: Yes (Other)
  Sender: FDA-Public Use
  Company Number: CA-PFIZER INC-2011141177

PATIENT
  Sex: Male

DRUGS (2)
  1. COVERA-HS [Concomitant]
     Indication: HYPERTENSION
     Dosage: 250 MG, 1X/DAY
  2. XALATAN [Suspect]
     Indication: GLAUCOMA
     Dosage: 1 GTT IN BOTH EYES, 1X/DAY
     Route: 047
     Dates: start: 20090101

REACTIONS (1)
  - CATARACT OPERATION [None]
